FAERS Safety Report 7762779-0 (Version None)
Quarter: 2011Q3

REPORT INFORMATION
  Report Type: 
  Country: None (occurrence: None)
  Receive Date: 20110825
  Receipt Date: 20110707
  Transmission Date: 20111222
  Serious: No
  Sender: FDA-Public Use
  Company Number: 331436

PATIENT
  Sex: Male

DRUGS (4)
  1. VICTOZA [Suspect]
     Indication: DIABETES MELLITUS
     Dosage: 0.6 MG/DL, SUBCUTANEOUS
     Route: 058
  2. VIT D (ERGOCALCIFEROL) [Concomitant]
  3. IBUPROFEN /00109205/ (IBUPROFEN SODIUM) [Concomitant]
  4. FISH OIL (FISH OIL) [Concomitant]

REACTIONS (4)
  - HYPOAESTHESIA [None]
  - ASTHENIA [None]
  - MYALGIA [None]
  - PARAESTHESIA [None]
